FAERS Safety Report 24031536 (Version 2)
Quarter: 2025Q2

REPORT INFORMATION
  Report Type: Spontaneous
  Country: US (occurrence: US)
  Receive Date: 20240629
  Receipt Date: 20250515
  Transmission Date: 20250716
  Serious: Yes (Life-Threatening, Hospitalization, Other)
  Sender: AUROBINDO
  Company Number: US-MLMSERVICE-20240613-PI099747-00312-1

PATIENT
  Age: 46 Year
  Sex: Male

DRUGS (1)
  1. TESTOSTERONE [Suspect]
     Active Substance: TESTOSTERONE
     Indication: Muscle building therapy
     Route: 065

REACTIONS (4)
  - Respiratory failure [Recovered/Resolved]
  - Acute lung injury [Recovered/Resolved]
  - Pulmonary eosinophilia [Recovered/Resolved]
  - Drug abuse [Recovered/Resolved]
